FAERS Safety Report 11195933 (Version 1)
Quarter: 2015Q2

REPORT INFORMATION
  Report Type: Spontaneous
  Country: US (occurrence: None)
  Receive Date: 20150616
  Receipt Date: 20150616
  Transmission Date: 20150821
  Serious: Yes (Death)
  Sender: FDA-Public Use
  Company Number: None

PATIENT
  Age: 88 Year
  Sex: Male
  Weight: 70 kg

DRUGS (1)
  1. ALTEPLASE [Suspect]
     Active Substance: ALTEPLASE
     Indication: THROMBOTIC STROKE
     Dosage: 6.3 MG BOLUS AND 56.7 MG DRIP
     Route: 042
     Dates: start: 20150404, end: 20150404

REACTIONS (2)
  - Haemorrhage intracranial [None]
  - Haemorrhagic stroke [None]

NARRATIVE: CASE EVENT DATE: 20150404
